FAERS Safety Report 23884552 (Version 2)
Quarter: 2025Q1

REPORT INFORMATION
  Report Type: Report from Study
  Country: IT (occurrence: IT)
  Receive Date: 20240522
  Receipt Date: 20250320
  Transmission Date: 20250409
  Serious: Yes (Hospitalization, Other)
  Sender: PFIZER
  Company Number: None

PATIENT
  Age: 7 Year
  Sex: Female
  Weight: 40 kg

DRUGS (15)
  1. DOXORUBICIN HYDROCHLORIDE [Suspect]
     Active Substance: DOXORUBICIN HYDROCHLORIDE
     Indication: B-cell type acute leukaemia
     Dosage: 35.5 MG, DAILY
     Route: 042
     Dates: start: 20240318, end: 20240318
  2. ONCASPAR [Suspect]
     Active Substance: PEGASPARGASE
     Indication: B-cell type acute leukaemia
     Route: 042
     Dates: start: 20240318, end: 20240318
  3. DOXORUBICIN HYDROCHLORIDE [Suspect]
     Active Substance: DOXORUBICIN HYDROCHLORIDE
     Indication: B-cell type acute leukaemia
     Dosage: 35, 80 MG/DAY ON 25/03, 04/02/2024 14.46 MG/DAY ON 08/04/2024
     Route: 042
     Dates: start: 20240325, end: 20240325
  4. DOXORUBICIN HYDROCHLORIDE [Suspect]
     Active Substance: DOXORUBICIN HYDROCHLORIDE
     Dosage: 35, 80 MG/DAY ON 25/03, 04/02/2024 14.46 MG/DAY ON 08/04/2024
     Route: 042
     Dates: start: 20240402, end: 20240402
  5. DOXORUBICIN HYDROCHLORIDE [Suspect]
     Active Substance: DOXORUBICIN HYDROCHLORIDE
     Dosage: 35, 80 MG/DAY ON 25/03, 04/02/2024 14.46 MG/DAY ON 08/04/2024
     Route: 042
     Dates: start: 20240408, end: 20240408
  6. DOXORUBICIN HYDROCHLORIDE [Suspect]
     Active Substance: DOXORUBICIN HYDROCHLORIDE
     Indication: B-cell type acute leukaemia
     Dosage: 21.34 MG, DAILY
     Route: 042
     Dates: start: 20240408, end: 20240408
  7. CYCLOPHOSPHAMIDE [Suspect]
     Active Substance: CYCLOPHOSPHAMIDE
     Indication: B-cell type acute leukaemia
     Dosage: 1190 MG, DAILY
     Route: 042
     Dates: start: 20240426, end: 20240426
  8. CYTARABINE [Suspect]
     Active Substance: CYTARABINE
     Indication: B-cell type acute leukaemia
     Dosage: 89.50 MG/DAY FROM DAY 29/04 TO DAY 02/05/2024 AND FROM DAY 06 TO DAY 09/05/2024.
     Route: 042
     Dates: start: 20240429, end: 20240502
  9. CYTARABINE [Suspect]
     Active Substance: CYTARABINE
     Dosage: 89.50 MG/DAY FROM DAY 29/04 TO DAY 02/05/2024 AND FROM DAY 06 TO DAY 09/05/2024.
     Route: 042
     Dates: start: 20240506, end: 20240509
  10. VINCRISTINE [Suspect]
     Active Substance: VINCRISTINE
     Indication: B-cell type acute leukaemia
     Dosage: 1, 75 MG/DAY ON 18, 25/03, 02, 08/04/2024
     Route: 042
     Dates: start: 20240318, end: 20240318
  11. VINCRISTINE [Suspect]
     Active Substance: VINCRISTINE
     Dosage: 1.75 MG/DAY ON 18, 25/03, 02, 08/04/2024
     Route: 042
     Dates: start: 20240325, end: 20240325
  12. VINCRISTINE [Suspect]
     Active Substance: VINCRISTINE
     Dosage: 1, 75 MG/DAY ON 18, 25/03, 02, 08/04/2024
     Route: 042
     Dates: start: 20240402, end: 20240402
  13. VINCRISTINE [Suspect]
     Active Substance: VINCRISTINE
     Dosage: 1. 75 MG/DAY ON 18, 25/03, 02, 08/04/2024UNK
     Route: 042
     Dates: start: 20240408, end: 20240408
  14. DEXAMETHASONE [Concomitant]
     Active Substance: DEXAMETHASONE
     Indication: B-cell type acute leukaemia
     Route: 048
     Dates: start: 20240311, end: 20240409
  15. ESOMEPRAZOLE MAGNESIUM [Concomitant]
     Active Substance: ESOMEPRAZOLE MAGNESIUM
     Indication: Prophylaxis against gastrointestinal ulcer
     Dosage: 40 MG/DIE
     Route: 048
     Dates: start: 20240311, end: 20240411

REACTIONS (4)
  - Febrile neutropenia [Recovered/Resolved]
  - Pancytopenia [Recovered/Resolved]
  - Alanine aminotransferase increased [Recovering/Resolving]
  - Stomatitis [Recovered/Resolved]

NARRATIVE: CASE EVENT DATE: 20240408
